FAERS Safety Report 9531985 (Version 1)
Quarter: 2013Q3

REPORT INFORMATION
  Report Type: Spontaneous
  Country: FR (occurrence: FR)
  Receive Date: 20130918
  Receipt Date: 20130918
  Transmission Date: 20140515
  Serious: Yes (Other)
  Sender: FDA-Public Use
  Company Number: FR-ROCHE-1275879

PATIENT
  Age: 85 Year
  Sex: Female

DRUGS (8)
  1. COPEGUS [Suspect]
     Indication: HEPATITIS E
     Route: 048
     Dates: start: 20130626
  2. MABTHERA [Suspect]
     Indication: B-CELL LYMPHOMA
     Dosage: 500MG/50ML
     Route: 042
     Dates: start: 20130801
  3. METHYLPREDNISOLONE [Concomitant]
     Indication: PREMEDICATION
     Route: 042
     Dates: start: 20130801, end: 20130801
  4. PARACETAMOL [Concomitant]
     Indication: PREMEDICATION
     Route: 042
     Dates: start: 20130801, end: 20130801
  5. POLARAMINE [Concomitant]
     Indication: PREMEDICATION
     Dosage: 5 MG/1 ML
     Route: 042
     Dates: start: 20130801, end: 20130801
  6. BACTRIM FORTE [Concomitant]
     Indication: PREMEDICATION
     Dosage: LONG-TERM TREATMENT
     Route: 048
  7. VALACICLOVIR [Concomitant]
     Indication: PROPHYLAXIS
     Dosage: LONG-TERM TREATMENT
     Route: 048
  8. INEXIUM [Concomitant]
     Indication: GASTRIC ULCER
     Dosage: LONG-TERM TREATMENT
     Route: 048

REACTIONS (1)
  - Anaemia folate deficiency [Recovering/Resolving]
